FAERS Safety Report 6578804-9 (Version None)
Quarter: 2010Q1

REPORT INFORMATION
  Report Type: 
  Country: None (occurrence: None)
  Receive Date: 20100211
  Receipt Date: 20100203
  Transmission Date: 20100710
  Serious: Yes (Other)
  Sender: FDA-Public Use
  Company Number: FR-GILEAD-2010-0026855

PATIENT
  Sex: Male

DRUGS (5)
  1. TRUVADA [Suspect]
     Indication: HIV INFECTION
     Route: 048
     Dates: start: 20080214, end: 20090921
  2. REYATAZ [Suspect]
     Indication: HIV INFECTION
     Route: 048
     Dates: start: 20080214, end: 20090620
  3. NORVIR [Suspect]
     Indication: HIV INFECTION
     Route: 048
     Dates: start: 20080214, end: 20090620
  4. SUSTIVA [Concomitant]
     Indication: HIV INFECTION
     Dates: start: 20090630
  5. COMBIVIR [Concomitant]
     Indication: HIV INFECTION

REACTIONS (3)
  - MUSCULOSKELETAL PAIN [None]
  - OSTEONECROSIS [None]
  - PAIN IN EXTREMITY [None]
